FAERS Safety Report 5189366-5 (Version None)
Quarter: 2006Q4

REPORT INFORMATION
  Report Type: 
  Country: None (occurrence: None)
  Receive Date: 20061221
  Receipt Date: 20061220
  Transmission Date: 20070319
  Serious: Yes (Hospitalization)
  Sender: FDA-Public Use
  Company Number: FR-MERCK-0612FRA00068

PATIENT
  Age: 48 Year
  Sex: Female
  Weight: 58 kg

DRUGS (5)
  1. ZOCOR [Suspect]
     Route: 048
     Dates: start: 20030101
  2. BROMAZEPAM [Suspect]
     Route: 048
     Dates: start: 20030101
  3. ETHINYL ESTRADIOL AND GESTODENE [Suspect]
     Indication: CONTRACEPTION
     Route: 048
     Dates: start: 20040102
  4. CLOPIDOGREL BISULFATE [Suspect]
     Route: 048
     Dates: start: 20030101
  5. ETHINYL ESTRADIOL AND GESTODENE [Suspect]
     Route: 048
     Dates: start: 19890101, end: 20040101

REACTIONS (1)
  - CEREBROVASCULAR ACCIDENT [None]
